FAERS Safety Report 18404017 (Version 4)
Quarter: 2020Q4

REPORT INFORMATION
  Report Type: Spontaneous
  Country: US (occurrence: US)
  Receive Date: 20201020
  Receipt Date: 20201130
  Transmission Date: 20210114
  Serious: No
  Sender: FDA-Public Use
  Company Number: US-JNJFOC-20201016618

PATIENT
  Age: 60 Year
  Sex: Female
  Weight: 118.04 kg

DRUGS (1)
  1. SIMPONI [Suspect]
     Active Substance: GOLIMUMAB
     Indication: PRODUCT USED FOR UNKNOWN INDICATION
     Route: 058

REACTIONS (7)
  - Visual impairment [Unknown]
  - Device malfunction [Unknown]
  - Product dose omission issue [Unknown]
  - Device issue [Unknown]
  - Product label issue [Unknown]
  - Malaise [Unknown]
  - Device leakage [Unknown]
